FAERS Safety Report 17739810 (Version 3)
Quarter: 2020Q3

REPORT INFORMATION
  Report Type: Spontaneous
  Country: IT (occurrence: IT)
  Receive Date: 20200504
  Receipt Date: 20200805
  Transmission Date: 20201102
  Serious: Yes (Hospitalization, Other)
  Sender: FDA-Public Use
  Company Number: IT-SA-2020SA110775

PATIENT

DRUGS (9)
  1. ZYLORIC [Concomitant]
     Active Substance: ALLOPURINOL
     Indication: HYPERURICAEMIA
     Dosage: 150 MG
     Route: 048
  2. TARDYFER [Concomitant]
     Active Substance: FERROUS SULFATE
     Indication: ANAEMIA
     Dosage: 1 DF
     Route: 048
  3. BINOCRIT [Concomitant]
     Active Substance: ERYTHROPOIETIN
     Indication: MICROCYTIC ANAEMIA
     Dosage: 4000 KIU
     Route: 058
  4. LASIX [Concomitant]
     Active Substance: FUROSEMIDE
     Indication: CHRONIC KIDNEY DISEASE
     Dosage: 150 MG
     Route: 048
  5. LAEVOLAC [Concomitant]
     Active Substance: LACTULOSE
     Indication: ASTRINGENT THERAPY
     Dosage: 1 DF
     Route: 048
  6. OMEPRAZEN [OMEPRAZOLE SODIUM] [Concomitant]
     Indication: PROPHYLAXIS
     Dosage: 1 DF
     Route: 048
  7. LUVION [CANRENONE] [Concomitant]
     Active Substance: CANRENONE
     Indication: CHRONIC KIDNEY DISEASE
     Dosage: 1 DF
     Route: 048
  8. CLEXANE [Suspect]
     Active Substance: ENOXAPARIN SODIUM
     Indication: ATRIAL FIBRILLATION
     Dosage: 4000 KIU, QD
     Route: 058
  9. ROCALTROL [Concomitant]
     Active Substance: CALCITRIOL
     Indication: VITAMIN D DEFICIENCY
     Dosage: 1 DF
     Route: 048

REACTIONS (3)
  - Abdominal pain [Recovering/Resolving]
  - Rectal haemorrhage [Recovering/Resolving]
  - Haematemesis [Recovering/Resolving]

NARRATIVE: CASE EVENT DATE: 20200409
